FAERS Safety Report 23580746 (Version 1)
Quarter: 2024Q1

REPORT INFORMATION
  Report Type: Spontaneous
  Country: IT (occurrence: IT)
  Receive Date: 20240229
  Receipt Date: 20240229
  Transmission Date: 20240410
  Serious: Yes (Hospitalization, Other)
  Sender: FDA-Public Use
  Company Number: None

PATIENT
  Age: 48 Year
  Sex: Female

DRUGS (3)
  1. NATALIZUMAB [Suspect]
     Active Substance: NATALIZUMAB
     Indication: Multiple sclerosis
     Dosage: OGNI 6 SETTIMANE
     Route: 042
  2. ESTRADIOL\NOMEGESTROL ACETATE [Suspect]
     Active Substance: ESTRADIOL\NOMEGESTROL ACETATE
     Dosage: UNA CPR AL GIORNO
     Route: 048
  3. ESTRADIOL\NOMEGESTROL ACETATE [Suspect]
     Active Substance: ESTRADIOL\NOMEGESTROL ACETATE
     Indication: Menstruation irregular
     Dosage: UNA CPR AL GIORNO
     Route: 048
     Dates: start: 20221223

REACTIONS (1)
  - Cerebrovascular accident [Recovering/Resolving]

NARRATIVE: CASE EVENT DATE: 20231120
